FAERS Safety Report 23518627 (Version 2)
Quarter: 2024Q1

REPORT INFORMATION
  Report Type: Spontaneous
  Country: CN (occurrence: CN)
  Receive Date: 20240213
  Receipt Date: 20240222
  Transmission Date: 20240410
  Serious: Yes (Other)
  Sender: FDA-Public Use
  Company Number: CN-PFIZER INC-PV202400019236

PATIENT
  Age: 37 Year
  Sex: Male
  Weight: 62 kg

DRUGS (2)
  1. ZITHROMAX [Suspect]
     Active Substance: AZITHROMYCIN DIHYDRATE
     Indication: Upper respiratory tract infection bacterial
     Dosage: 0.5 G, 1X/DAY (QD)
     Route: 048
     Dates: start: 20240201, end: 20240202
  2. CEFUROXIME AXETIL [Concomitant]
     Active Substance: CEFUROXIME AXETIL
     Indication: Upper respiratory tract infection bacterial
     Dosage: 0.5 G, 2X/DAY (BID)
     Route: 048
     Dates: start: 20240201, end: 20240202

REACTIONS (3)
  - Rash pruritic [Recovered/Resolved]
  - Nausea [Recovered/Resolved]
  - Decreased appetite [Recovered/Resolved]

NARRATIVE: CASE EVENT DATE: 20240202
